FAERS Safety Report 24823458 (Version 1)
Quarter: 2025Q1

REPORT INFORMATION
  Report Type: Spontaneous
  Country: IT (occurrence: None)
  Receive Date: 20250109
  Receipt Date: 20250109
  Transmission Date: 20250408
  Serious: Yes (Other)
  Sender: SUPERNUS PHARMACEUTICALS, INC.
  Company Number: IT-ARIS GLOBAL-SUP202412-004830

PATIENT
  Age: 35 Year
  Sex: Male

DRUGS (1)
  1. OXCARBAZEPINE [Suspect]
     Active Substance: OXCARBAZEPINE
     Indication: Partial seizures

REACTIONS (1)
  - Retrograde ejaculation [Recovered/Resolved]
